FAERS Safety Report 5759497-7 (Version None)
Quarter: 2008Q2

REPORT INFORMATION
  Report Type: 
  Country: None (occurrence: None)
  Receive Date: 20080605
  Receipt Date: 20080514
  Transmission Date: 20081010
  Serious: Yes (Hospitalization)
  Sender: FDA-Public Use
  Company Number: GB-RANBAXY-2008RR-15578

PATIENT

DRUGS (3)
  1. CODEINE SUL TAB [Suspect]
     Indication: POSTOPERATIVE ANALGESIA
     Dosage: 65 MG, UNK
     Route: 054
     Dates: start: 20080430, end: 20080430
  2. FLOXACILLIN SODIUM [Concomitant]
     Route: 048
  3. ACETAMINOPHEN [Concomitant]
     Route: 054

REACTIONS (5)
  - ERYTHEMA [None]
  - MIOSIS [None]
  - OVERDOSE [None]
  - RASH [None]
  - TACHYCARDIA [None]
